FAERS Safety Report 20422733 (Version 2)
Quarter: 2022Q1

REPORT INFORMATION
  Report Type: Spontaneous
  Country: US (occurrence: US)
  Receive Date: 20220203
  Receipt Date: 20220214
  Transmission Date: 20220423
  Serious: No
  Sender: FDA-Public Use
  Company Number: US-PFIZER INC-202101149514

PATIENT
  Age: 60 Year
  Sex: Female
  Weight: 80.726 kg

DRUGS (2)
  1. INLYTA [Suspect]
     Active Substance: AXITINIB
     Indication: Renal cell carcinoma
     Dosage: EVERY 12 HOURS
     Route: 048
     Dates: start: 20210702, end: 20211228
  2. FLONASE ALLERGY RELIEF [Concomitant]
     Active Substance: FLUTICASONE PROPIONATE

REACTIONS (6)
  - Weight increased [Unknown]
  - Blood pressure increased [Unknown]
  - Tongue discomfort [Unknown]
  - Glossodynia [Unknown]
  - Hepatic enzyme increased [Unknown]
  - COVID-19 [Unknown]
